FAERS Safety Report 7719283-5 (Version None)
Quarter: 2011Q3

REPORT INFORMATION
  Report Type: 
  Country: None (occurrence: None)
  Receive Date: 20110830
  Receipt Date: 20110822
  Transmission Date: 20111222
  Serious: Yes (Life-Threatening, Hospitalization)
  Sender: FDA-Public Use
  Company Number: US-BAYER-201027720NA

PATIENT
  Age: 17 Year
  Sex: Female

DRUGS (12)
  1. TORADOL [Concomitant]
     Dosage: 10 MG, UNK
     Route: 048
     Dates: start: 20070815
  2. YAZ [Suspect]
     Indication: POLYCYSTIC OVARIES
  3. TRILEPTAL [Concomitant]
     Dosage: 150 MG, BID, FOR 60 DAYS
     Route: 048
  4. MIRALAX [Concomitant]
     Dosage: UNK
     Dates: start: 20070801
  5. ENEMAS [Concomitant]
     Dosage: UNK
     Dates: start: 20070801
  6. NORETHINDRONE [Concomitant]
     Dosage: UNK UNK, QD
  7. ANAPROX DS [Concomitant]
     Dosage: 550 MG, BID, AS NEEDED
     Route: 048
     Dates: start: 20070625, end: 20070815
  8. PROZAC [Concomitant]
     Dosage: 20 MG, UNK
     Route: 048
  9. NAPROXEN [Concomitant]
     Dosage: 550 MG, UNK
     Route: 048
  10. YAZ [Suspect]
     Indication: CONTRACEPTION
     Route: 048
     Dates: start: 20070101, end: 20080101
  11. LOESTRIN FE 1/20 [Concomitant]
     Dosage: UNK UNK, QD
     Dates: start: 20070212
  12. TRILEPTAL [Concomitant]
     Dosage: 300 MG, UNK
     Route: 048

REACTIONS (4)
  - RENAL FAILURE [None]
  - RENAL TUBULAR NECROSIS [None]
  - ORGAN FAILURE [None]
  - DEHYDRATION [None]
